FAERS Safety Report 8442028-0 (Version None)
Quarter: 2012Q2

REPORT INFORMATION
  Report Type: 
  Country: None (occurrence: None)
  Receive Date: 20120615
  Receipt Date: 20120607
  Transmission Date: 20120825
  Serious: Yes (Other)
  Sender: FDA-Public Use
  Company Number: US-JNJFOC-20120604875

PATIENT
  Sex: Female
  Weight: 72.58 kg

DRUGS (5)
  1. DURAGESIC-100 [Suspect]
     Indication: NERVE INJURY
     Route: 062
     Dates: start: 20060301
  2. PERCOCET [Suspect]
     Indication: PAIN
     Route: 048
  3. VALIUM [Concomitant]
     Indication: MOVEMENT DISORDER
     Route: 048
  4. SYNTHROID [Concomitant]
     Route: 065
  5. NORDITROPIN [Concomitant]
     Indication: HYPOPITUITARISM
     Route: 065

REACTIONS (10)
  - DRUG INEFFECTIVE [None]
  - WEIGHT DECREASED [None]
  - PRODUCT QUALITY ISSUE [None]
  - DYSURIA [None]
  - CONCUSSION [None]
  - HYPOTHALAMO-PITUITARY DISORDER [None]
  - FALL [None]
  - DRUG ADMINISTRATION ERROR [None]
  - MEMORY IMPAIRMENT [None]
  - WRONG TECHNIQUE IN DRUG USAGE PROCESS [None]
